FAERS Safety Report 4532377-0 (Version None)
Quarter: 2004Q4

REPORT INFORMATION
  Report Type: 
  Country: None (occurrence: None)
  Receive Date: 20041220
  Receipt Date: 20041210
  Transmission Date: 20050328
  Serious: Yes (Death, Life-Threatening, Hospitalization)
  Sender: FDA-Public Use
  Company Number: US-MERCK-0412USA01351

PATIENT
  Age: 91 Year
  Sex: Female

DRUGS (13)
  1. VIOXX [Suspect]
     Indication: ARTHRITIS
     Route: 048
     Dates: start: 19990927, end: 20021117
  2. FOSAMAX [Concomitant]
     Route: 048
  3. PLAVIX [Concomitant]
     Route: 065
  4. DETROL [Concomitant]
     Route: 065
  5. VASOTEC [Concomitant]
     Route: 048
  6. ARICEPT [Concomitant]
     Route: 065
  7. CYANOCOBALAMIN [Concomitant]
     Route: 051
  8. EVISTA [Concomitant]
     Route: 065
  9. MECLIZINE [Concomitant]
     Route: 065
  10. ZITHROMAX [Concomitant]
     Route: 065
  11. SUDAFED S.A. [Concomitant]
     Route: 065
  12. ROBITUSSIN-DM [Concomitant]
     Route: 065
  13. ASPIRIN [Concomitant]
     Route: 065

REACTIONS (3)
  - CEREBROVASCULAR ACCIDENT [None]
  - DEATH [None]
  - HYPERTENSION [None]
